FAERS Safety Report 9850933 (Version 1)
Quarter: 2014Q1

REPORT INFORMATION
  Report Type: Other
  Country: KW (occurrence: KW)
  Receive Date: 20140128
  Receipt Date: 20140128
  Transmission Date: 20141002
  Serious: Yes (Other)
  Sender: FDA-Public Use
  Company Number: KW-US-EMD SERONO, INC.-7264620

PATIENT
  Age: 27 Year
  Sex: Female

DRUGS (1)
  1. CLOMIPHENE CITRATE [Suspect]
     Indication: OVULATION INDUCTION

REACTIONS (5)
  - Benign hydatidiform mole [Unknown]
  - Vaginal haemorrhage [Unknown]
  - Breech presentation [Unknown]
  - Premature labour [Unknown]
  - Premature delivery [Recovered/Resolved]
